FAERS Safety Report 4703567-9 (Version None)
Quarter: 2005Q2

REPORT INFORMATION
  Report Type: 
  Country: None (occurrence: None)
  Receive Date: 20050628
  Receipt Date: 20050614
  Transmission Date: 20051028
  Serious: Yes (Hospitalization)
  Sender: FDA-Public Use
  Company Number: US_0506118160

PATIENT
  Age: 85 Year
  Sex: Female
  Weight: 57 kg

DRUGS (11)
  1. FORTEO [Suspect]
     Indication: OSTEOPOROSIS
     Dosage: 20 UG/1 DAY
     Dates: start: 20040101
  2. ACTONEL [Concomitant]
  3. CARDURA [Concomitant]
  4. LASIX [Concomitant]
  5. PROCARDIA XL (NIFEDIPINE PA) [Concomitant]
  6. KLOR-CON [Concomitant]
  7. MOBIC [Concomitant]
  8. ESTROGENS CONJUGATED [Concomitant]
  9. ELOCON (MONETASONE FUROATE) [Concomitant]
  10. AMBIEN [Concomitant]
  11. CALCIUM GLUCONATE [Concomitant]

REACTIONS (5)
  - ASTHMA [None]
  - NASOPHARYNGITIS [None]
  - SHOULDER PAIN [None]
  - TENDON RUPTURE [None]
  - VAGINAL POLYP [None]
